FAERS Safety Report 9915534 (Version 2)
Quarter: 2014Q3

REPORT INFORMATION
  Report Type: Spontaneous
  Country: US (occurrence: US)
  Receive Date: 20140221
  Receipt Date: 20140915
  Transmission Date: 20150326
  Serious: Yes (Hospitalization)
  Sender: FDA-Public Use
  Company Number: US-BRISTOL-MYERS SQUIBB COMPANY-20212684

PATIENT
  Age: 66 Year
  Sex: Male

DRUGS (30)
  1. LISINOPRIL. [Concomitant]
     Active Substance: LISINOPRIL
     Route: 048
  2. COUMADIN [Concomitant]
     Active Substance: WARFARIN SODIUM
     Route: 048
  3. APREPITANT [Concomitant]
     Active Substance: APREPITANT
  4. AMLODIPINE [Concomitant]
     Active Substance: AMLODIPINE BESYLATE
     Route: 048
  5. ATORVASTATIN [Concomitant]
     Active Substance: ATORVASTATIN
     Route: 048
  6. CARVEDILOL. [Concomitant]
     Active Substance: CARVEDILOL
     Dosage: WITH MEALS
     Route: 048
  7. METFORMIN [Concomitant]
     Active Substance: METFORMIN HYDROCHLORIDE
     Dosage: WITH FOOD
     Route: 048
  8. HAEMOPHILUS B POLYSACCHARIDE VACCINE [Concomitant]
     Active Substance: HAEMOPHILUS B POLYSACCHARIDE VACCINE
  9. DOCUSATE SODIUM. [Concomitant]
     Active Substance: DOCUSATE SODIUM
  10. PROCHLORPERAZINE. [Concomitant]
     Active Substance: PROCHLORPERAZINE
  11. JANUVIA [Suspect]
     Active Substance: SITAGLIPTIN PHOSPHATE
     Dates: start: 200809, end: 201303
  12. JANUMET [Suspect]
     Active Substance: METFORMIN HYDROCHLORIDE\SITAGLIPTIN PHOSPHATE
     Dates: start: 200902, end: 201011
  13. GLIPIZIDE. [Concomitant]
     Active Substance: GLIPIZIDE
     Route: 048
  14. PNEUMOCOCCAL VACCINE [Concomitant]
     Active Substance: PNEUMOCOCCAL VACCINE POLYVALENT
     Dosage: 1DF = 23VALENT
  15. INSULIN GLARGINE [Concomitant]
     Active Substance: INSULIN GLARGINE
  16. INSULIN LISPRO [Concomitant]
     Active Substance: INSULIN LISPRO
  17. WARFARIN [Concomitant]
     Active Substance: WARFARIN
  18. MULTIVITAMIN [Concomitant]
     Active Substance: VITAMINS
     Dosage: 1DF = 1CAPSULE
     Route: 048
  19. ZOLPIDEM [Concomitant]
     Active Substance: ZOLPIDEM\ZOLPIDEM TARTRATE
     Dosage: NIGHTLY
     Route: 048
  20. SOTALOL. [Concomitant]
     Active Substance: SOTALOL
  21. LEVOTHYROXINE [Concomitant]
     Active Substance: LEVOTHYROXINE
     Route: 048
  22. VALSARTAN. [Concomitant]
     Active Substance: VALSARTAN
     Route: 048
  23. ONDANSETRON [Concomitant]
     Active Substance: ONDANSETRON
  24. ASPIRIN. [Concomitant]
     Active Substance: ASPIRIN
     Route: 048
  25. DOXAZOSIN [Concomitant]
     Active Substance: DOXAZOSIN\DOXAZOSIN MESYLATE
     Dosage: NIGHTLY
     Route: 048
  26. CIPROFLOXACIN. [Concomitant]
     Active Substance: CIPROFLOXACIN
  27. LOPERAMIDE [Concomitant]
     Active Substance: LOPERAMIDE
     Dosage: NIGHTLY
     Route: 048
  28. BYETTA [Suspect]
     Active Substance: EXENATIDE
     Dates: start: 2006, end: 200609
  29. FUROSEMIDE. [Concomitant]
     Active Substance: FUROSEMIDE
     Route: 048
  30. MAGNESIUM OXIDE. [Concomitant]
     Active Substance: MAGNESIUM OXIDE

REACTIONS (1)
  - Pancreatic carcinoma metastatic [Recovering/Resolving]

NARRATIVE: CASE EVENT DATE: 20130318
